FAERS Safety Report 5408882-1 (Version None)
Quarter: 2007Q3

REPORT INFORMATION
  Report Type: 
  Country: None (occurrence: None)
  Receive Date: 20070808
  Receipt Date: 20070802
  Transmission Date: 20080115
  Serious: Yes (Death)
  Sender: FDA-Public Use
  Company Number: FR-ROXANE LABORATORIES, INC-2007-DE-04597GD

PATIENT

DRUGS (3)
  1. MORPHINE [Suspect]
     Indication: PROCEDURAL PAIN
     Route: 042
  2. ACETAMINOPHEN [Concomitant]
     Indication: PROCEDURAL PAIN
     Route: 051
  3. DROPERIDOL [Concomitant]
     Route: 042

REACTIONS (2)
  - BRONCHIAL FISTULA [None]
  - LUNG DISORDER [None]
